FAERS Safety Report 20715197 (Version 1)
Quarter: 2022Q2

REPORT INFORMATION
  Report Type: Spontaneous
  Country: AT (occurrence: AT)
  Receive Date: 20220415
  Receipt Date: 20220415
  Transmission Date: 20220721
  Serious: Yes (Other)
  Sender: FDA-Public Use
  Company Number: AT-PFIZER INC-202200392521

PATIENT
  Age: 77 Year
  Sex: Female

DRUGS (2)
  1. LETROZOLE [Suspect]
     Active Substance: LETROZOLE
     Indication: Breast cancer metastatic
     Dosage: UNK
  2. IBRANCE [Suspect]
     Active Substance: PALBOCICLIB
     Indication: Breast cancer metastatic
     Dosage: 125 MILLIGRAM
     Dates: start: 201905

REACTIONS (6)
  - Carcinoembryonic antigen increased [Unknown]
  - Leukopenia [Unknown]
  - Carbohydrate antigen 15-3 increased [Unknown]
  - Haemoglobin decreased [Unknown]
  - Granulocyte count decreased [Unknown]
  - Haematotoxicity [Unknown]
